FAERS Safety Report 19329912 (Version 2)
Quarter: 2021Q2

REPORT INFORMATION
  Report Type: Spontaneous
  Country: US (occurrence: US)
  Receive Date: 20210528
  Receipt Date: 20210629
  Transmission Date: 20210717
  Serious: Yes (Hospitalization, Other)
  Sender: FDA-Public Use
  Company Number: US-COVIS PHARMA GMBH-2021COV22709

PATIENT
  Age: 0 Day
  Sex: Male
  Weight: 3.06 kg

DRUGS (1)
  1. MAKENA [Suspect]
     Active Substance: HYDROXYPROGESTERONE CAPROATE
     Indication: FOETAL EXPOSURE DURING PREGNANCY
     Route: 064
     Dates: start: 20210307, end: 20210424

REACTIONS (2)
  - Premature baby [Recovered/Resolved]
  - Respiratory disorder neonatal [Unknown]

NARRATIVE: CASE EVENT DATE: 20210505
